FAERS Safety Report 12945913 (Version 4)
Quarter: 2016Q4

REPORT INFORMATION
  Report Type: Report from Study
  Country: IE (occurrence: IE)
  Receive Date: 20161116
  Receipt Date: 20161129
  Transmission Date: 20170207
  Serious: Yes (Hospitalization)
  Sender: FDA-Public Use
  Company Number: IE-ASTRAZENECA-2016SF21124

PATIENT
  Age: 891 Month
  Sex: Female

DRUGS (12)
  1. IMODIUM ? PRN [Concomitant]
     Indication: DIARRHOEA
     Dates: start: 201509
  2. CALCICHEW D3 FORTE [Concomitant]
     Active Substance: CALCIUM\CHOLECALCIFEROL
     Indication: BONE DISORDER
     Dates: start: 201507
  3. VALOID [Concomitant]
     Active Substance: CYCLIZINE HYDROCHLORIDE
     Indication: PROPHYLAXIS
     Dates: start: 201601
  4. VIDISIC EYEDROPS PRN [Concomitant]
     Indication: DRY EYE
     Dates: start: 201506
  5. ESOMEPRAZOLE [Concomitant]
     Active Substance: ESOMEPRAZOLE
     Indication: GASTROOESOPHAGEAL REFLUX DISEASE
     Dates: start: 201507
  6. VERSATIS PATCH [Concomitant]
     Indication: BACK PAIN
     Dates: start: 201509
  7. TAGRISSO [Suspect]
     Active Substance: OSIMERTINIB
     Indication: NON-SMALL CELL LUNG CANCER
     Route: 048
     Dates: start: 20160722, end: 20161105
  8. ZANIDIP [Concomitant]
     Active Substance: LERCANIDIPINE HYDROCHLORIDE
     Indication: HYPERTENSION
     Dates: start: 2010
  9. ZOMETA [Concomitant]
     Active Substance: ZOLEDRONIC ACID
     Indication: METASTASES TO BONE
     Dates: start: 201507
  10. SEPTRIN [Suspect]
     Active Substance: SULFAMETHOXAZOLE\TRIMETHOPRIM
     Indication: ANTIFUNGAL PROPHYLAXIS
     Route: 042
     Dates: start: 20161107, end: 20161111
  11. OROMORPH [Concomitant]
     Indication: MUSCULOSKELETAL CHEST PAIN
     Dates: start: 20160625
  12. DEXAMETHASONE. [Concomitant]
     Active Substance: DEXAMETHASONE
     Indication: METASTASES TO CENTRAL NERVOUS SYSTEM
     Dates: start: 201606

REACTIONS (3)
  - Electrocardiogram QT prolonged [Recovered/Resolved]
  - Pneumocystis jirovecii infection [Unknown]
  - Vomiting [Recovered/Resolved]

NARRATIVE: CASE EVENT DATE: 20161026
